FAERS Safety Report 9308033 (Version 1)
Quarter: 2013Q2

REPORT INFORMATION
  Report Type: Spontaneous
  Country: US (occurrence: US)
  Receive Date: 20130524
  Receipt Date: 20130524
  Transmission Date: 20140414
  Serious: Yes (Other)
  Sender: FDA-Public Use
  Company Number: US-BAYER-2013-064532

PATIENT
  Age: 86 Year
  Sex: Female
  Weight: 50.79 kg

DRUGS (1)
  1. ALKA-SELTZER PLUS COLD + COUGH FORMULA LIQUID GEL [Suspect]
     Indication: NASAL CONGESTION
     Dosage: 2 DF, ONCE
     Route: 048
     Dates: start: 20130521, end: 20130521

REACTIONS (1)
  - Choking [Recovered/Resolved]
